FAERS Safety Report 8558878-6 (Version None)
Quarter: 2012Q3

REPORT INFORMATION
  Report Type: 
  Country: None (occurrence: None)
  Receive Date: 20120801
  Receipt Date: 20120726
  Transmission Date: 20120928
  Serious: Yes (Other)
  Sender: FDA-Public Use
  Company Number: GB-TEVA-350425ISR

PATIENT
  Age: 74 Year
  Sex: Female
  Weight: 73 kg

DRUGS (3)
  1. RAMIPRIL [Concomitant]
     Indication: HYPERTENSION
     Dosage: ONGOING
     Dates: start: 20020101
  2. CODEINE SULFATE [Suspect]
     Indication: NECK PAIN
  3. BENDROFLUMETHIAZIDE [Concomitant]
     Indication: HYPERTENSION
     Dosage: ONGOING

REACTIONS (4)
  - VOMITING [None]
  - PARAESTHESIA [None]
  - TREMOR [None]
  - DYSPNOEA [None]
